FAERS Safety Report 5716311-3 (Version None)
Quarter: 2008Q2

REPORT INFORMATION
  Report Type: 
  Country: None (occurrence: None)
  Receive Date: 20080416
  Receipt Date: 20070813
  Transmission Date: 20081010
  Serious: Yes (Other)
  Sender: FDA-Public Use
  Company Number: PHEH2007US10815

PATIENT
  Sex: Female
  Weight: 53.5 kg

DRUGS (1)
  1. FORADIL [Suspect]
     Indication: ASTHMA
     Dosage: 12 MG, Q12H, INHALATION
     Route: 055
     Dates: start: 20070730

REACTIONS (4)
  - ASTHMA [None]
  - THROAT IRRITATION [None]
  - THROAT TIGHTNESS [None]
  - UPPER RESPIRATORY TRACT CONGESTION [None]
